FAERS Safety Report 9266013 (Version 1)
Quarter: 2013Q2

REPORT INFORMATION
  Report Type: Spontaneous
  Country: US (occurrence: US)
  Receive Date: 20130501
  Receipt Date: 20130501
  Transmission Date: 20140414
  Serious: No
  Sender: FDA-Public Use
  Company Number: US-009507513-1304USA005518

PATIENT
  Age: 55 Year
  Sex: Male

DRUGS (6)
  1. VICTRELIS [Suspect]
     Indication: HEPATITIS C
     Dosage: 4 OF THE 200 MG CAPSULES, 7-9 HOURS APART WITH FOOD OR SNACK
     Route: 048
     Dates: start: 20130327
  2. PEGINTRON [Suspect]
     Indication: HEPATITIS C
     Dosage: 150 MICROGRAM, QW
     Route: 058
     Dates: start: 20130220
  3. RIBAPAK [Suspect]
     Dosage: UNK
     Dates: start: 20130220
  4. CELEBREX [Concomitant]
  5. GINKGO [Concomitant]
  6. MILK THISTLE [Concomitant]

REACTIONS (4)
  - Faeces pale [Unknown]
  - Dyspepsia [Unknown]
  - Dizziness [Unknown]
  - Fatigue [Unknown]
